FAERS Safety Report 5586078-0 (Version None)
Quarter: 2007Q4

REPORT INFORMATION
  Report Type: 
  Country: None (occurrence: None)
  Receive Date: 20071205
  Receipt Date: 20061103
  Transmission Date: 20080405
  Serious: Yes (Other)
  Sender: FDA-Public Use
  Company Number: HQWYE358103NOV06

PATIENT
  Sex: Male

DRUGS (1)
  1. EFFEXOR XR [Suspect]
     Indication: DEPRESSION
     Dosage: 225MG - FREQUENCY UNSPECIFIED, ORAL
     Route: 048
     Dates: start: 20030101

REACTIONS (1)
  - BLOOD CREATINE PHOSPHOKINASE INCREASED [None]
